FAERS Safety Report 9155441 (Version 2)
Quarter: 2013Q1

REPORT INFORMATION
  Report Type: Spontaneous
  Country: JP (occurrence: JP)
  Receive Date: 20130311
  Receipt Date: 20130313
  Transmission Date: 20140127
  Serious: Yes (Other)
  Sender: FDA-Public Use
  Company Number: JP-009507513-1303JPN000455

PATIENT
  Age: 74 Year
  Sex: Female
  Weight: 56 kg

DRUGS (12)
  1. JANUVIA TABLETS 50MG [Suspect]
     Indication: TYPE 2 DIABETES MELLITUS
     Dosage: 50 MG, QD
     Route: 048
     Dates: start: 20110519, end: 20120413
  2. NU-LOTAN [Concomitant]
     Indication: HYPERTENSION
     Dosage: 50 MG, QD
     Route: 048
  3. LIVALO [Concomitant]
     Indication: DYSLIPIDAEMIA
     Dosage: 1 MG, QD
     Route: 048
     Dates: start: 20061026, end: 20111020
  4. LIVALO [Concomitant]
     Dosage: 2 MG, QD
     Route: 048
     Dates: start: 20111021
  5. OMEPRAL [Concomitant]
     Indication: GASTRIC ULCER
     Dosage: 20 MG, QD
     Route: 048
     Dates: start: 20070510
  6. OMEPRAL [Concomitant]
     Indication: GASTRITIS
  7. MUCOSTA [Concomitant]
     Indication: GASTRIC ULCER
     Dosage: 100 MG, BID
     Route: 048
     Dates: start: 20070510
  8. MUCOSTA [Concomitant]
     Indication: GASTRITIS
  9. PANALDINE [Concomitant]
     Indication: CEREBRAL INFARCTION
     Dosage: 100 MG, QD
     Route: 048
     Dates: start: 1999
  10. BASEN OD [Concomitant]
     Indication: TYPE 2 DIABETES MELLITUS
     Dosage: 0.3 MG, TID
     Route: 048
     Dates: start: 20091009, end: 20120413
  11. GLUFAST [Concomitant]
     Indication: TYPE 2 DIABETES MELLITUS
     Dosage: 5 MG, TID
     Route: 048
     Dates: start: 20110922, end: 20120413
  12. FOSAMAC TABLETS-5 [Concomitant]
     Dosage: 35 MG, QW
     Route: 048
     Dates: start: 20081225

REACTIONS (1)
  - Polymyalgia rheumatica [Not Recovered/Not Resolved]
